FAERS Safety Report 13893884 (Version 1)
Quarter: 2017Q3

REPORT INFORMATION
  Report Type: Spontaneous
  Country: US (occurrence: US)
  Receive Date: 20170822
  Receipt Date: 20170822
  Transmission Date: 20171127
  Serious: No
  Sender: FDA-Public Use
  Company Number: US-TARO-2016TAR01070

PATIENT
  Sex: Male

DRUGS (1)
  1. CLOBETASOL PROPIONATE CREAM USP 0.05% [Suspect]
     Active Substance: CLOBETASOL PROPIONATE
     Dosage: UNK, ONCE
     Route: 048
     Dates: start: 201612, end: 201612

REACTIONS (5)
  - Vomiting [Recovered/Resolved]
  - Stomatitis [Unknown]
  - Accidental exposure to product [Unknown]
  - Malaise [Unknown]
  - Rash [Unknown]

NARRATIVE: CASE EVENT DATE: 201612
